FAERS Safety Report 7742844-4 (Version None)
Quarter: 2011Q3

REPORT INFORMATION
  Report Type: 
  Country: None (occurrence: None)
  Receive Date: 20110817
  Receipt Date: 20110203
  Transmission Date: 20111222
  Serious: Yes (Hospitalization, Other)
  Sender: FDA-Public Use
  Company Number: 20109770

PATIENT
  Sex: Female

DRUGS (1)
  1. LIORESAL [Suspect]
     Indication: MUSCLE SPASTICITY
     Dosage: SEE B5 MCG, DAILY, INTRATHECAL
     Route: 037

REACTIONS (9)
  - DRUG WITHDRAWAL SYNDROME [None]
  - TREMOR [None]
  - HYPERTONIA [None]
  - DIARRHOEA [None]
  - PRURITUS [None]
  - PAIN [None]
  - HOSPITALISATION [None]
  - MUSCLE TWITCHING [None]
  - VOMITING [None]
